FAERS Safety Report 10947692 (Version 2)
Quarter: 2015Q2

REPORT INFORMATION
  Report Type: Spontaneous
  Country: JP (occurrence: JP)
  Receive Date: 20150324
  Receipt Date: 20150416
  Transmission Date: 20150821
  Serious: Yes (Other)
  Sender: FDA-Public Use
  Company Number: JP-UCBSA-2015004033

PATIENT
  Age: 39 Year
  Sex: Female

DRUGS (13)
  1. LAMICTAL [Suspect]
     Active Substance: LAMOTRIGINE
     Dosage: UNK
     Route: 048
     Dates: start: 20090203, end: 20111006
  2. LAMICTAL [Suspect]
     Active Substance: LAMOTRIGINE
     Dosage: UNK
     Route: 048
     Dates: start: 20111007, end: 20130110
  3. PHENOBAL [Concomitant]
     Active Substance: PHENOBARBITAL
     Indication: PRODUCT USED FOR UNKNOWN INDICATION
     Dosage: UNK
     Route: 048
     Dates: start: 20010804
  4. KEPPRA [Suspect]
     Active Substance: LEVETIRACETAM
     Indication: EPILEPSY
     Dosage: 250 MG, ONCE DAILY (QD)
     Route: 048
     Dates: start: 20140306, end: 20140421
  5. KEPPRA [Suspect]
     Active Substance: LEVETIRACETAM
     Dosage: DOSE RANGE BETWEEN 1250 MG AND 2000 MG
     Route: 048
     Dates: start: 20140718, end: 20141203
  6. LAMICTAL [Suspect]
     Active Substance: LAMOTRIGINE
     Dosage: UNK
     Route: 048
     Dates: start: 20130111
  7. DEPAKENE [Concomitant]
     Active Substance: VALPROIC ACID
     Indication: PRODUCT USED FOR UNKNOWN INDICATION
     Dosage: DAILY DOSE: 2000 MG
     Route: 048
     Dates: start: 20010804
  8. TEGRETOL [Concomitant]
     Active Substance: CARBAMAZEPINE
     Indication: PRODUCT USED FOR UNKNOWN INDICATION
     Dosage: DAILY DOSE: 600 MG
     Route: 048
     Dates: start: 20010804
  9. KEPPRA [Suspect]
     Active Substance: LEVETIRACETAM
     Dosage: DOSE RANGE BETWEEN 2250 MG AND 2500 MG
     Route: 048
     Dates: start: 20141204
  10. MYSTAN [Concomitant]
     Active Substance: CLOBAZAM
     Indication: PRODUCT USED FOR UNKNOWN INDICATION
     Dosage: DAILY DOSE: 10 MG
     Route: 048
     Dates: start: 20010804
  11. LAMICTAL [Suspect]
     Active Substance: LAMOTRIGINE
     Indication: PRODUCT USED FOR UNKNOWN INDICATION
     Dosage: 25 MG, UNK
     Route: 048
     Dates: start: 20090113, end: 20090202
  12. KEPPRA [Suspect]
     Active Substance: LEVETIRACETAM
     Dosage: DOSE RANGE BETWEEN 500 MG AND 1000 MG
     Route: 048
     Dates: start: 20140421, end: 20140717
  13. FERROMIA [Concomitant]
     Active Substance: FERROUS CITRATE
     Indication: PRODUCT USED FOR UNKNOWN INDICATION
     Dosage: DAILY DOSE: 50 MG
     Route: 048

REACTIONS (2)
  - Metrorrhagia [Recovering/Resolving]
  - Anaemia [Recovering/Resolving]

NARRATIVE: CASE EVENT DATE: 20150116
